FAERS Safety Report 14753020 (Version 1)
Quarter: 2018Q2

REPORT INFORMATION
  Report Type: Spontaneous
  Country: IT (occurrence: IT)
  Receive Date: 20180412
  Receipt Date: 20180412
  Transmission Date: 20180711
  Serious: Yes (Other)
  Sender: FDA-Public Use
  Company Number: IT-MYLANLABS-2018M1022628

PATIENT
  Age: 97 Year
  Sex: Female

DRUGS (1)
  1. TICLOPIDINE [Suspect]
     Active Substance: TICLOPIDINE
     Indication: PROPHYLAXIS
     Dosage: 1 DF, QD
     Route: 048

REACTIONS (1)
  - Conjunctival haemorrhage [Unknown]

NARRATIVE: CASE EVENT DATE: 20170723
